FAERS Safety Report 5979025-0 (Version None)
Quarter: 2008Q4

REPORT INFORMATION
  Report Type: 
  Country: None (occurrence: None)
  Receive Date: 20081204
  Receipt Date: 20080520
  Transmission Date: 20090506
  Serious: No
  Sender: FDA-Public Use
  Company Number: US-ABBOTT-08P-163-0455404-00

PATIENT
  Age: 37 Year
  Sex: Male

DRUGS (3)
  1. TRICOR [Suspect]
     Indication: BLOOD TRIGLYCERIDES ABNORMAL
     Dates: start: 20070805
  2. TRICOR [Suspect]
     Indication: BLOOD CHOLESTEROL
  3. FLUOXETINE [Concomitant]
     Indication: DRUG USE FOR UNKNOWN INDICATION

REACTIONS (4)
  - DEREALISATION [None]
  - DYSSTASIA [None]
  - HYPERSOMNIA [None]
  - MOBILITY DECREASED [None]
